FAERS Safety Report 4679389-4 (Version None)
Quarter: 2005Q2

REPORT INFORMATION
  Report Type: 
  Country: None (occurrence: None)
  Receive Date: 20050602
  Receipt Date: 20050520
  Transmission Date: 20051028
  Serious: Yes (Hospitalization)
  Sender: FDA-Public Use
  Company Number: NO-GLAXOSMITHKLINE-B0382816A

PATIENT
  Age: 52 Year
  Sex: Male

DRUGS (3)
  1. LAMICTAL [Suspect]
     Indication: EPILEPSY
     Dosage: 25MG PER DAY
     Route: 048
     Dates: start: 20050316, end: 20050331
  2. VALPROATE SODIUM [Suspect]
     Indication: EPILEPSY
     Route: 048
  3. AMPICILLIN [Concomitant]
     Dates: start: 20050301

REACTIONS (10)
  - ATRIAL FIBRILLATION [None]
  - DRUG INTERACTION [None]
  - HEPATIC FUNCTION ABNORMAL [None]
  - PANCYTOPENIA [None]
  - PNEUMONIA [None]
  - PYREXIA [None]
  - RASH MACULO-PAPULAR [None]
  - SINUS RHYTHM [None]
  - SYSTEMIC INFLAMMATORY RESPONSE SYNDROME [None]
  - TACHYCARDIA [None]
